FAERS Safety Report 6998942-6 (Version None)
Quarter: 2010Q3

REPORT INFORMATION
  Report Type: 
  Country: None (occurrence: None)
  Receive Date: 20100920
  Receipt Date: 20100713
  Transmission Date: 20110219
  Serious: No
  Sender: FDA-Public Use
  Company Number: US-ASTRAZENECA-2010SE33472

PATIENT
  Age: 45 Year
  Sex: Female

DRUGS (8)
  1. SEROQUEL [Suspect]
     Route: 048
     Dates: start: 20060503
  2. LEXAPRO [Concomitant]
     Dates: start: 20050630
  3. GABAPENTIN [Concomitant]
     Dates: start: 20061204
  4. DIOVAN HCL [Concomitant]
     Dosage: 80-12.5 MG
     Dates: start: 20050928
  5. PREMARIN [Concomitant]
     Dates: start: 20060120
  6. PREDNISONE [Concomitant]
     Dates: start: 20060510
  7. TRIAMTERENE AND HYDROCHLOROTHIAZIDE [Concomitant]
     Dosage: 37.5MG-25MG
     Dates: start: 20060622
  8. GLYBURIDE AND METFORMIN HYDROCHLORIDE [Concomitant]
     Dosage: 2.5-500MG
     Dates: start: 20061204

REACTIONS (2)
  - DIABETES MELLITUS [None]
  - THYROID NEOPLASM [None]
